FAERS Safety Report 14393263 (Version 2)
Quarter: 2018Q1

REPORT INFORMATION
  Report Type: Report from Study
  Country: CO (occurrence: CO)
  Receive Date: 20180116
  Receipt Date: 20180130
  Transmission Date: 20180509
  Serious: Yes (Other)
  Sender: FDA-Public Use
  Company Number: PHHY2018CO003062

PATIENT
  Sex: Female
  Weight: 48 kg

DRUGS (2)
  1. LUCENTIS [Suspect]
     Active Substance: RANIBIZUMAB
     Indication: MACULAR OEDEMA
     Dosage: 5 MG, QMO
     Route: 047
     Dates: start: 20150109
  2. LOSARTAN. [Suspect]
     Active Substance: LOSARTAN
     Indication: HYPERTENSION
     Route: 065

REACTIONS (5)
  - Incorrect dose administered [Unknown]
  - Influenza [Recovered/Resolved]
  - Pyrexia [Unknown]
  - Ear infection [Recovered/Resolved]
  - Ear haemorrhage [Unknown]
